FAERS Safety Report 6670947-4 (Version None)
Quarter: 2010Q2

REPORT INFORMATION
  Report Type: 
  Country: None (occurrence: None)
  Receive Date: 20100406
  Receipt Date: 20100406
  Transmission Date: 20101027
  Serious: Yes (Death, Hospitalization)
  Sender: FDA-Public Use
  Company Number: None

PATIENT
  Sex: Male
  Weight: 138.1 kg

DRUGS (3)
  1. CARBOPLATIN [Suspect]
     Dosage: 2100 MG
  2. ERBITUX [Suspect]
     Dosage: 4704 MG
  3. TAXOL [Suspect]
     Dosage: 726 MG

REACTIONS (10)
  - BACTERAEMIA [None]
  - CARDIAC VALVE DISEASE [None]
  - CARDIAC VALVE VEGETATION [None]
  - DISEASE PROGRESSION [None]
  - ENDOCARDITIS STAPHYLOCOCCAL [None]
  - HEPARIN-INDUCED THROMBOCYTOPENIA [None]
  - LUNG NEOPLASM MALIGNANT [None]
  - PLEURAL EFFUSION [None]
  - SEPSIS [None]
  - TACHYCARDIA [None]
